FAERS Safety Report 13984770 (Version 1)
Quarter: 2017Q3

REPORT INFORMATION
  Report Type: Spontaneous
  Country: CA (occurrence: CA)
  Receive Date: 20170918
  Receipt Date: 20170918
  Transmission Date: 20171128
  Serious: Yes (Hospitalization, Disabling, Other)
  Sender: FDA-Public Use
  Company Number: CA-MYLANLABS-2017M1056488

PATIENT
  Age: 45 Year
  Sex: Male
  Weight: 75 kg

DRUGS (6)
  1. PANTOPRAZOLE [Suspect]
     Active Substance: PANTOPRAZOLE
     Indication: GASTROOESOPHAGEAL REFLUX DISEASE
     Dosage: 40 MG, QD
     Route: 048
  2. GABAPENTIN. [Concomitant]
     Active Substance: GABAPENTIN
     Indication: PRODUCT USED FOR UNKNOWN INDICATION
     Dosage: UNK
  3. MARIJUANA [Concomitant]
     Active Substance: CANNABIS SATIVA SUBSP. INDICA TOP
     Indication: PRODUCT USED FOR UNKNOWN INDICATION
     Dosage: UNK
  4. ADVIL COLD + FLU                   /01050201/ [Concomitant]
     Indication: PRODUCT USED FOR UNKNOWN INDICATION
     Dosage: UNK
  5. IBUPROFEN. [Concomitant]
     Active Substance: IBUPROFEN
     Indication: PRODUCT USED FOR UNKNOWN INDICATION
     Dosage: UNK
  6. CORTICOSTEROIDS [Concomitant]
     Active Substance: CORTICOSTEROID NOS
     Indication: PRODUCT USED FOR UNKNOWN INDICATION
     Dosage: UNK

REACTIONS (19)
  - Middle ear disorder [Unknown]
  - Tinnitus [Unknown]
  - Auditory disorder [Unknown]
  - Dysacusis [Unknown]
  - Head discomfort [Unknown]
  - Headache [Unknown]
  - Hypoacusis [Unknown]
  - Condition aggravated [Unknown]
  - Depression [Unknown]
  - Ear pain [Unknown]
  - Hyperacusis [Unknown]
  - Acoustic stimulation tests abnormal [Unknown]
  - Deafness neurosensory [Unknown]
  - Eustachian tube obstruction [Unknown]
  - Ear discomfort [Unknown]
  - Disturbance in attention [Unknown]
  - Drug interaction [Unknown]
  - Irritability [Unknown]
  - Ototoxicity [Unknown]
